FAERS Safety Report 16924658 (Version 4)
Quarter: 2019Q4

REPORT INFORMATION
  Report Type: Spontaneous
  Country: US (occurrence: US)
  Receive Date: 20191016
  Receipt Date: 20191121
  Transmission Date: 20200122
  Serious: No
  Sender: FDA-Public Use
  Company Number: US-PFIZER INC-2019441978

PATIENT
  Age: 55 Year
  Sex: Female
  Weight: 96.16 kg

DRUGS (1)
  1. XELJANZ XR [Suspect]
     Active Substance: TOFACITINIB CITRATE
     Dosage: 11 MG, UNK

REACTIONS (6)
  - Weight increased [Unknown]
  - Fibromyalgia [Unknown]
  - Hunger [Unknown]
  - Disturbance in attention [Unknown]
  - Pain [Unknown]
  - Memory impairment [Unknown]
